FAERS Safety Report 8234567-2 (Version None)
Quarter: 2012Q1

REPORT INFORMATION
  Report Type: 
  Country: None (occurrence: None)
  Receive Date: 20120326
  Receipt Date: 20120313
  Transmission Date: 20120608
  Serious: Yes (Hospitalization)
  Sender: FDA-Public Use
  Company Number: US-SANOFI-AVENTIS-2012SA018011

PATIENT
  Age: 52 Year
  Sex: Female
  Weight: 67.12 kg

DRUGS (8)
  1. ELOXATIN [Suspect]
     Indication: GASTRIC CANCER
     Route: 042
     Dates: start: 20110509, end: 20110509
  2. LEUCOVORIN CALCIUM [Suspect]
     Route: 042
     Dates: start: 20120116, end: 20120116
  3. LEUCOVORIN CALCIUM [Suspect]
     Indication: GASTRIC CANCER
     Route: 042
     Dates: start: 20110509, end: 20110509
  4. BLINDED THERAPY [Suspect]
     Indication: GASTRIC CANCER
     Route: 042
     Dates: start: 20110509, end: 20110509
  5. BLINDED THERAPY [Suspect]
     Route: 042
     Dates: start: 20120116, end: 20120116
  6. FLUOROURACIL [Suspect]
     Route: 041
     Dates: start: 20120116, end: 20120116
  7. ELOXATIN [Suspect]
     Route: 042
     Dates: start: 20120116, end: 20120116
  8. FLUOROURACIL [Suspect]
     Indication: GASTRIC CANCER
     Route: 041
     Dates: start: 20110509, end: 20110509

REACTIONS (1)
  - ODYNOPHAGIA [None]
